FAERS Safety Report 12575894 (Version 1)
Quarter: 2016Q3

REPORT INFORMATION
  Report Type: Spontaneous
  Country: CA (occurrence: CA)
  Receive Date: 20160720
  Receipt Date: 20160720
  Transmission Date: 20161109
  Serious: Yes (Hospitalization, Other)
  Sender: FDA-Public Use
  Company Number: CA-HQ SPECIALTY-CA-2016INT000544

PATIENT
  Age: 70 Year
  Sex: Female

DRUGS (7)
  1. PLAQUENIL                          /00072602/ [Concomitant]
     Active Substance: HYDROXYCHLOROQUINE DIPHOSPHATE
     Indication: RHEUMATOID ARTHRITIS
     Dosage: 400 MG, 1 D
     Dates: start: 201411, end: 201503
  2. METHOTREXATE SODIUM. [Suspect]
     Active Substance: METHOTREXATE SODIUM
     Dosage: 1.4286 MG (10 MG,1 IN 1 W)
     Dates: start: 201411
  3. ARAVA [Concomitant]
     Active Substance: LEFLUNOMIDE
     Dosage: DECREASING DOSE
     Dates: start: 2012, end: 201205
  4. METHOTREXATE SODIUM. [Suspect]
     Active Substance: METHOTREXATE SODIUM
     Dosage: 7.5 MG, UNK
     Dates: end: 201503
  5. METHOTREXATE SODIUM. [Suspect]
     Active Substance: METHOTREXATE SODIUM
     Dosage: 1.7857 MG (12.5 MG,1 IN 1 W)
  6. METHOTREXATE SODIUM. [Suspect]
     Active Substance: METHOTREXATE SODIUM
     Indication: RHEUMATOID ARTHRITIS
     Dosage: 25 MG, UNK
     Route: 048
     Dates: start: 201101
  7. ARAVA [Concomitant]
     Active Substance: LEFLUNOMIDE
     Indication: RHEUMATOID ARTHRITIS
     Dosage: 20 MG (20 MG,1 IN 1 D)
     Dates: start: 201103

REACTIONS (9)
  - White blood cell count decreased [Unknown]
  - Drug ineffective [Unknown]
  - Hepatic enzyme increased [Unknown]
  - Platelet count decreased [Unknown]
  - Pneumonia [Recovered/Resolved]
  - Diarrhoea [Unknown]
  - Rheumatoid arthritis [Recovering/Resolving]
  - Nasopharyngitis [Not Recovered/Not Resolved]
  - Weight increased [Unknown]

NARRATIVE: CASE EVENT DATE: 2011
